FAERS Safety Report 7788534-3 (Version None)
Quarter: 2011Q3

REPORT INFORMATION
  Report Type: 
  Country: None (occurrence: None)
  Receive Date: 20110922
  Receipt Date: 20110919
  Transmission Date: 20111222
  Serious: Yes (Other)
  Sender: FDA-Public Use
  Company Number: 2011027490

PATIENT
  Age: 45 Year
  Sex: Female
  Weight: 108.4097 kg

DRUGS (15)
  1. HIZENTRA [Suspect]
  2. HIZENTRA [Suspect]
  3. SPIRIVA [Concomitant]
  4. HIZENTRA [Suspect]
  5. PROAIR (PROCATEROL HYDROCHLORIDE) [Concomitant]
  6. ZETIA [Concomitant]
  7. HIZENTRA [Suspect]
     Indication: SELECTIVE IGG SUBCLASS DEFICIENCY
     Dosage: SEE IMAGE
  8. FORADIL [Concomitant]
  9. JANUVIA (DRUG USED IN DIABETES) [Concomitant]
  10. ZYRTEC [Concomitant]
  11. NEXIUM (ESOMEPRAZOLE MAGNESIUM) [Concomitant]
  12. SPIRONOLACTONE (SPIRONOLACTONE) [Concomitant]
  13. AMARYL [Concomitant]
  14. PULMICORT [Concomitant]
  15. AVAPRO	(IRBESARTAN) [Concomitant]

REACTIONS (6)
  - NAUSEA [None]
  - INFUSION SITE PRURITUS [None]
  - HEADACHE [None]
  - INFUSION SITE ERYTHEMA [None]
  - SINUSITIS [None]
  - PRURITUS [None]
